FAERS Safety Report 8995504 (Version 1)
Quarter: 2013Q1

REPORT INFORMATION
  Report Type: Spontaneous
  Country: US (occurrence: US)
  Receive Date: 20130103
  Receipt Date: 20130103
  Transmission Date: 20140127
  Serious: No
  Sender: FDA-Public Use
  Company Number: US-ABBOTT-12P-163-0908343-00

PATIENT
  Age: 39 Year
  Sex: Female
  Weight: 85.35 kg

DRUGS (5)
  1. SYNTHROID [Suspect]
     Indication: HYPOTHYROIDISM
     Dates: start: 20120216, end: 20120223
  2. GUANFACINE [Concomitant]
     Indication: ATTENTION DEFICIT/HYPERACTIVITY DISORDER
  3. GUANFACINE [Concomitant]
     Indication: HYPERTENSION
  4. XANAX [Concomitant]
     Indication: ANXIETY
  5. BENADRYL [Concomitant]
     Indication: SLEEP DISORDER

REACTIONS (3)
  - Hypoaesthesia [Not Recovered/Not Resolved]
  - Sensory disturbance [Not Recovered/Not Resolved]
  - Sensory disturbance [Not Recovered/Not Resolved]
